FAERS Safety Report 9724820 (Version 1)
Quarter: 2013Q4

REPORT INFORMATION
  Report Type: Report from Study
  Country: CA (occurrence: CA)
  Receive Date: 20131202
  Receipt Date: 20131202
  Transmission Date: 20140711
  Serious: Yes (Hospitalization)
  Sender: FDA-Public Use
  Company Number: CA-TEVA-448316USA

PATIENT
  Age: 54 Year
  Sex: Female

DRUGS (9)
  1. COPAXONE [Suspect]
     Indication: MULTIPLE SCLEROSIS
     Dates: start: 20070402
  2. GABAPENTIN [Suspect]
  3. CLONAZEPAM [Concomitant]
  4. CARBAMAZEPINE [Concomitant]
  5. SERTRALINE [Concomitant]
  6. MINERAL [Concomitant]
  7. AMITRIPTYLINE [Concomitant]
  8. PANTOLOC [Concomitant]
  9. MULTIVITAMIN [Concomitant]

REACTIONS (2)
  - Neoplasm malignant [Not Recovered/Not Resolved]
  - Swollen tongue [Recovered/Resolved]
